FAERS Safety Report 10736719 (Version 1)
Quarter: 2015Q1

REPORT INFORMATION
  Report Type: Spontaneous
  Country: US (occurrence: US)
  Receive Date: 20150126
  Receipt Date: 20150126
  Transmission Date: 20150721
  Serious: Yes (Other)
  Sender: FDA-Public Use
  Company Number: US-ASTELLAS-2015US001749

PATIENT
  Sex: Female

DRUGS (2)
  1. MINIVELLE [Concomitant]
     Active Substance: ESTRADIOL
     Indication: HORMONE REPLACEMENT THERAPY
     Dosage: UNK UNK, UNKNOWN FREQ.
     Route: 062
  2. VESICARE [Suspect]
     Active Substance: SOLIFENACIN SUCCINATE
     Indication: PRODUCT USED FOR UNKNOWN INDICATION
     Route: 048

REACTIONS (2)
  - Disability [Unknown]
  - Bunion operation [Unknown]

NARRATIVE: CASE EVENT DATE: 2014
